FAERS Safety Report 25875675 (Version 1)
Quarter: 2025Q4

REPORT INFORMATION
  Report Type: Other
  Country: ID (occurrence: ID)
  Receive Date: 20251003
  Receipt Date: 20251003
  Transmission Date: 20260118
  Serious: Yes (Other)
  Sender: NOVITIUM PHARMA
  Company Number: ID-NOVITIUM PHARMA-000011

PATIENT
  Age: 56 Year
  Sex: Female

DRUGS (1)
  1. IMATINIB [Suspect]
     Active Substance: IMATINIB
     Indication: Chronic myeloid leukaemia

REACTIONS (3)
  - Cardiotoxicity [Recovered/Resolved]
  - Cardiac failure congestive [Recovered/Resolved]
  - Left ventricular dysfunction [Recovered/Resolved]
